FAERS Safety Report 9593136 (Version 1)
Quarter: 2013Q4

REPORT INFORMATION
  Report Type: Spontaneous
  Country: IT (occurrence: IT)
  Receive Date: 20131004
  Receipt Date: 20131004
  Transmission Date: 20140711
  Serious: Yes (Other)
  Sender: FDA-Public Use
  Company Number: IT-PFIZER INC-2013279086

PATIENT
  Age: 56 Year
  Sex: Female

DRUGS (4)
  1. DOXORUBICIN HCL [Suspect]
  2. VINCRISTINE SULFATE [Suspect]
  3. CYCLOPHOSPHAMIDE [Suspect]
     Dosage: UNK
  4. DEXAMETHASONE [Suspect]

REACTIONS (5)
  - Tumour lysis syndrome [Unknown]
  - Renal failure [Unknown]
  - Acute respiratory failure [Unknown]
  - Weight increased [Unknown]
  - Respiratory alkalosis [Unknown]
